FAERS Safety Report 7313335-X (Version None)
Quarter: 2011Q1

REPORT INFORMATION
  Report Type: 
  Country: None (occurrence: None)
  Receive Date: 20110225
  Receipt Date: 20110221
  Transmission Date: 20110831
  Serious: Yes (Other)
  Sender: FDA-Public Use
  Company Number: ES-ROXANE LABORATORIES, INC.-2011-RO-00215RO

PATIENT
  Sex: Female

DRUGS (2)
  1. BEVACIZUMAB [Suspect]
     Indication: OVARIAN CANCER RECURRENT
     Route: 042
  2. CYCLOPHOSPHAMIDE [Suspect]
     Indication: OVARIAN CANCER RECURRENT
     Dosage: 50 MG
     Route: 048

REACTIONS (1)
  - INTESTINAL FISTULA [None]
